FAERS Safety Report 8376253-4 (Version None)
Quarter: 2012Q1

REPORT INFORMATION
  Report Type: 
  Country: None (occurrence: None)
  Receive Date: 20120323
  Receipt Date: 20111017
  Transmission Date: 20120608
  Serious: Yes (Other)
  Sender: FDA-Public Use
  Company Number: 163-21880-11072598

PATIENT
  Age: 80 Year
  Sex: Male

DRUGS (14)
  1. REVLIMID [Suspect]
     Indication: MULTIPLE MYELOMA
     Dosage: 25 MG, 1 IN 1 D, PO 15 MG, 1 IN 1 D, PO 15 MG, QD 21/28, PO 10 MG, 1 IN 1 D, PO 5 MG, OD X 21, PO
     Route: 048
     Dates: start: 20091101
  2. REVLIMID [Suspect]
     Indication: MULTIPLE MYELOMA
     Dosage: 25 MG, 1 IN 1 D, PO 15 MG, 1 IN 1 D, PO 15 MG, QD 21/28, PO 10 MG, 1 IN 1 D, PO 5 MG, OD X 21, PO
     Route: 048
     Dates: start: 20110701
  3. REVLIMID [Suspect]
     Indication: MULTIPLE MYELOMA
     Dosage: 25 MG, 1 IN 1 D, PO 15 MG, 1 IN 1 D, PO 15 MG, QD 21/28, PO 10 MG, 1 IN 1 D, PO 5 MG, OD X 21, PO
     Route: 048
     Dates: start: 20110622
  4. REVLIMID [Suspect]
     Indication: MULTIPLE MYELOMA
     Dosage: 25 MG, 1 IN 1 D, PO 15 MG, 1 IN 1 D, PO 15 MG, QD 21/28, PO 10 MG, 1 IN 1 D, PO 5 MG, OD X 21, PO
     Route: 048
     Dates: start: 20110901
  5. REVLIMID [Suspect]
     Indication: MULTIPLE MYELOMA
     Dosage: 25 MG, 1 IN 1 D, PO 15 MG, 1 IN 1 D, PO 15 MG, QD 21/28, PO 10 MG, 1 IN 1 D, PO 5 MG, OD X 21, PO
     Route: 048
     Dates: start: 20100101
  6. ZANTAC [Concomitant]
  7. TAMSULOSIN HCL [Concomitant]
  8. HUMULIN R [Concomitant]
  9. DEXAMETHASONE [Concomitant]
  10. MIRALAX [Concomitant]
  11. WARFARIN SODIUM [Concomitant]
  12. CARVEDILOL [Concomitant]
  13. FOLIC ACID [Concomitant]
  14. ZOMETA [Concomitant]

REACTIONS (7)
  - FEELING HOT [None]
  - DIZZINESS [None]
  - BACK PAIN [None]
  - WHITE BLOOD CELL COUNT DECREASED [None]
  - PLATELET COUNT DECREASED [None]
  - FATIGUE [None]
  - DEEP VEIN THROMBOSIS [None]
